FAERS Safety Report 7400311-1 (Version None)
Quarter: 2011Q1

REPORT INFORMATION
  Report Type: 
  Country: None (occurrence: None)
  Receive Date: 20110330
  Receipt Date: 20110315
  Transmission Date: 20110831
  Serious: Yes (Hospitalization, Disabling)
  Sender: FDA-Public Use
  Company Number: 2011MA002440

PATIENT
  Age: 13 Year
  Sex: Female

DRUGS (7)
  1. METHOTREXATE [Concomitant]
  2. ARABINOSIDE [Concomitant]
  3. HYDROCORTISONE [Suspect]
     Indication: SARCOMA
     Dosage: 250 MG/M**2;INTH
     Route: 037
  4. VINCRISTINE [Concomitant]
  5. CYCLOSPORINE [Concomitant]
  6. CYTOSINE [Concomitant]
  7. DACTINOMYCIN [Concomitant]

REACTIONS (5)
  - PARALYSIS [None]
  - PARAPLEGIA [None]
  - URINARY INCONTINENCE [None]
  - MYELITIS [None]
  - FAECAL INCONTINENCE [None]
